FAERS Safety Report 11020844 (Version 1)
Quarter: 2015Q2

REPORT INFORMATION
  Report Type: Not Available
  Country: FR (occurrence: FR)
  Receive Date: 20150413
  Receipt Date: 20150413
  Transmission Date: 20150821
  Serious: Yes (Other)
  Sender: FDA-Public Use
  Company Number: FR-BEH-2015050200

PATIENT
  Age: 56 Year
  Sex: Female

DRUGS (20)
  1. SEROPLEX [Concomitant]
     Active Substance: ESCITALOPRAM OXALATE
     Dosage: 10 MG AT NIGHT
  2. ATARAX [Concomitant]
     Active Substance: HYDROXYZINE\HYDROXYZINE HYDROCHLORIDE
     Indication: PRURITUS
  3. CREON [Concomitant]
     Active Substance: PANCRELIPASE AMYLASE\PANCRELIPASE LIPASE\PANCRELIPASE PROTEASE
     Dosage: 12000 U MORNING AND EVENING
  4. ROVALCYTE [Concomitant]
     Active Substance: VALGANCICLOVIR HYDROCHLORIDE
     Dosage: 2 TABLETS MORNING AND EVENING SINCE 26JAN2015
  5. TACROLIMUS. [Concomitant]
     Active Substance: TACROLIMUS
     Dosage: 1.6 G IN THE MORNING AND IN THE EVENING
  6. NOXAFIL [Concomitant]
     Active Substance: POSACONAZOLE
     Dosage: NOT TAKEN BY THE PATIENT AND THEORETICALLY 200 MG MORNING, NOON AND EVENING
  7. DRIPTAN [Concomitant]
     Dosage: 2.5 MG MORNING, NOON AND EVENING
  8. PRIVIGEN [Suspect]
     Active Substance: HUMAN IMMUNOGLOBULIN G
     Dosage: 100 MG/ML
     Route: 042
     Dates: start: 20150128
  9. GAVISCON [Concomitant]
     Active Substance: ALUMINUM HYDROXIDE\MAGNESIUM CARBONATE
  10. LOXEN [Concomitant]
     Active Substance: NICARDIPINE HYDROCHLORIDE
  11. PRIMPERAN [Concomitant]
     Active Substance: METOCLOPRAMIDE HYDROCHLORIDE
     Indication: NAUSEA
  12. SMECTA [Concomitant]
     Active Substance: MONTMORILLONITE
     Indication: DIARRHOEA
  13. CIFLOX [Concomitant]
     Active Substance: CIPROFLOXACIN
     Indication: BK VIRUS INFECTION
     Dosage: 1 TABLET MORNING AND EVENING
  14. TRIATEC [Concomitant]
     Active Substance: RAMIPRIL
     Dosage: 1 TABLET IN THE MORNING
  15. INNOHEP [Concomitant]
     Active Substance: TINZAPARIN SODIUM
     Dosage: 10000 U: 0,2 ML A DAY AT 08:00 PM
  16. TIORFAN [Concomitant]
     Active Substance: RACECADOTRIL
     Indication: DIARRHOEA
  17. POLARAMINE [Concomitant]
     Active Substance: DEXCHLORPHENIRAMINE MALEATE
     Indication: PRURITUS
  18. LEDERFOLINE [Concomitant]
     Active Substance: LEUCOVORIN CALCIUM
     Dosage: 1 A DAY
  19. VITAMIN K [Concomitant]
     Active Substance: PHYTONADIONE
  20. AERIUS [Concomitant]
     Active Substance: DESLORATADINE
     Dosage: 5 MG/DAY

REACTIONS (6)
  - Pyrexia [Recovered/Resolved]
  - Hyperthermia [Recovered/Resolved]
  - Back pain [Recovered/Resolved]
  - Infusion related reaction [Recovered/Resolved]
  - Muscle contractions involuntary [Recovered/Resolved]
  - Chest discomfort [Recovered/Resolved]

NARRATIVE: CASE EVENT DATE: 20150128
